FAERS Safety Report 19674211 (Version 1)
Quarter: 2021Q3

REPORT INFORMATION
  Report Type: Spontaneous
  Country: US (occurrence: US)
  Receive Date: 20210809
  Receipt Date: 20210809
  Transmission Date: 20211014
  Serious: Yes (Other)
  Sender: FDA-Public Use
  Company Number: US-JIANGSU HENGRUI MEDICINE CO., LTD.-2114767

PATIENT
  Sex: Male

DRUGS (8)
  1. IRINOTECAN HYDROCHLORIDE FOR INJECTION [Suspect]
     Active Substance: IRINOTECAN HYDROCHLORIDE
  2. ETOPOSIDE. [Suspect]
     Active Substance: ETOPOSIDE
  3. CYCLOPHOSPHAMIDE FOR INJECTION USP, 500 MG, 1 G AND 2 G PER SINGLE?DOS [Suspect]
     Active Substance: CYCLOPHOSPHAMIDE
     Indication: DESMOPLASTIC SMALL ROUND CELL TUMOUR
  4. VINCRISTINE [Suspect]
     Active Substance: VINCRISTINE
  5. TEMSIROLIMUS. [Suspect]
     Active Substance: TEMSIROLIMUS
  6. DOXORUBICIN [Suspect]
     Active Substance: DOXORUBICIN
  7. IFOSFAMIDE. [Suspect]
     Active Substance: IFOSFAMIDE
  8. TEMOZOLOMIDE. [Suspect]
     Active Substance: TEMOZOLOMIDE

REACTIONS (4)
  - Product use in unapproved indication [Unknown]
  - Cytopenia [Unknown]
  - Diarrhoea [Unknown]
  - Retinal haemorrhage [Unknown]
